FAERS Safety Report 17797197 (Version 1)
Quarter: 2020Q2

REPORT INFORMATION
  Report Type: Spontaneous
  Country: NO (occurrence: NO)
  Receive Date: 20200518
  Receipt Date: 20200518
  Transmission Date: 20200714
  Serious: Yes (Hospitalization, Other)
  Sender: FDA-Public Use
  Company Number: NO-TEVA-2020-NO-1235369

PATIENT
  Age: 29 Year
  Sex: Female

DRUGS (11)
  1. COPAXONE [Suspect]
     Active Substance: GLATIRAMER ACETATE
     Dosage: THERAPY END DATE: ASKED BUT UNKNOWN
     Dates: start: 2017
  2. LEMTRADA [Suspect]
     Active Substance: ALEMTUZUMAB
     Indication: RELAPSING-REMITTING MULTIPLE SCLEROSIS
     Dosage: 12 MG,QD 24 MG DIVIDED IN TWO INFUSIONS. INFUSION RATE 12 ML/HOUR, INCREASED TO 20 ML/HOUR.
     Route: 041
     Dates: start: 20160801, end: 20160802
  3. CETIRIZINE [Concomitant]
     Active Substance: CETIRIZINE HYDROCHLORIDE
     Indication: PREMEDICATION
     Dosage: 10 MILLIGRAM DAILY; THERAPY END DATE: ASKED BUT UNKNOWN
     Route: 048
     Dates: start: 20160801
  4. ZOVIRAX [Concomitant]
     Active Substance: ACYCLOVIR
     Indication: PREMEDICATION
     Dosage: 400 MILLIGRAM DAILY; THERAPY END DATE: ASKED BUT UNKNOWN
     Route: 048
     Dates: start: 20160801
  5. DUORESP SPIROMAX [Concomitant]
     Active Substance: BUDESONIDE\FORMOTEROL
     Indication: ASTHMA
     Dosage: THERAPY START AND END DATE : ASKED BUT UNKNOWN
     Route: 065
  6. TECFIDERA [Suspect]
     Active Substance: DIMETHYL FUMARATE
     Dosage: THERAPY START DATE: ASKED BUT UNKNOWN
     Route: 065
     Dates: end: 20170127
  7. PARACETAMOL [Concomitant]
     Active Substance: ACETAMINOPHEN
     Indication: PREMEDICATION
     Dosage: 1 GRAM DAILY; THERAPY END DATE: ASKED BUT UNKNOWN
     Route: 048
     Dates: start: 20160801
  8. SOMAC [Concomitant]
     Active Substance: PANTOPRAZOLE SODIUM
     Indication: PREMEDICATION
     Dosage: 40 MILLIGRAM DAILY; THERAPY END DATE: ASKED BUT UNKNOWN
     Route: 048
     Dates: start: 20160801
  9. INTERFERON BETA NOS [Concomitant]
     Active Substance: INTERFERON BETA
     Dosage: INTERFERON-BETA FROM JUNE TO JULY 2016 (TREATMENT STOPPED IN THE END OF JULY).
     Route: 065
     Dates: start: 20160606, end: 201607
  10. SOLU-MEDROL [Concomitant]
     Active Substance: METHYLPREDNISOLONE SODIUM SUCCINATE
     Indication: PREMEDICATION
     Dosage: THERAPY END DATE: ASKED BUT UNKNOWN; 1G DAILY FOR 3 DAYS, THEN 500 MG DAILY FOR 2 DAYS ADMINISTERED
     Route: 042
     Dates: start: 20160801
  11. SOLU-MEDROL [Concomitant]
     Active Substance: METHYLPREDNISOLONE SODIUM SUCCINATE
     Dosage: 500 MILLIGRAM DAILY; THERAPY END DATE: ASKED BUT UNKNOWN
     Route: 042
     Dates: start: 20160801

REACTIONS (18)
  - Pulmonary alveolar haemorrhage [Recovered/Resolved]
  - Extensor plantar response [Unknown]
  - Cough [Recovered/Resolved]
  - Drug intolerance [Unknown]
  - Muscular weakness [Recovered/Resolved]
  - Multiple sclerosis [Unknown]
  - Gait disturbance [Unknown]
  - Hypoaesthesia [Unknown]
  - Dyspnoea [Recovered/Resolved]
  - Vibration test abnormal [Unknown]
  - Hyperthyroidism [Unknown]
  - Monoplegia [Unknown]
  - Haemoptysis [Recovered/Resolved]
  - Chest discomfort [Recovered/Resolved]
  - Chest pain [Recovered/Resolved]
  - Hypokinesia [Unknown]
  - Multiple sclerosis relapse [Unknown]
  - Lymphopenia [Unknown]

NARRATIVE: CASE EVENT DATE: 20160802
